FAERS Safety Report 14708697 (Version 2)
Quarter: 2019Q3

REPORT INFORMATION
  Report Type: Report from Study
  Country: US (occurrence: US)
  Receive Date: 20180403
  Receipt Date: 20190816
  Transmission Date: 20191004
  Serious: No
  Sender: FDA-Public Use
  Company Number: US-SHIRE-US201812239

PATIENT
  Sex: Female
  Weight: 98.87 kg

DRUGS (13)
  1. FIRAZYR [Suspect]
     Active Substance: ICATIBANT ACETATE
     Dosage: 30 MG, AS REQ^D
     Route: 058
     Dates: start: 20190304
  2. VITAMIN D2 [Concomitant]
     Active Substance: ERGOCALCIFEROL
     Indication: PRODUCT USED FOR UNKNOWN INDICATION
  3. MULTIVITAMIN                       /00097801/ [Concomitant]
     Active Substance: VITAMINS
     Indication: PRODUCT USED FOR UNKNOWN INDICATION
  4. CETIRIZINE [Concomitant]
     Active Substance: CETIRIZINE HYDROCHLORIDE
     Indication: PRODUCT USED FOR UNKNOWN INDICATION
  5. FUROSEMIDE. [Concomitant]
     Active Substance: FUROSEMIDE
     Indication: PRODUCT USED FOR UNKNOWN INDICATION
  6. FIRAZYR [Suspect]
     Active Substance: ICATIBANT ACETATE
     Indication: HEREDITARY ANGIOEDEMA
     Dosage: 30 MG, AS REQ^D
     Route: 058
     Dates: start: 20171221
  7. POTASSIUM CHLORIDE. [Concomitant]
     Active Substance: POTASSIUM CHLORIDE
     Indication: PRODUCT USED FOR UNKNOWN INDICATION
  8. OXYCODONE [Concomitant]
     Active Substance: OXYCODONE
     Indication: PRODUCT USED FOR UNKNOWN INDICATION
  9. PROMETHAZINE [Concomitant]
     Active Substance: PROMETHAZINE HYDROCHLORIDE
     Indication: PRODUCT USED FOR UNKNOWN INDICATION
  10. ALPRAZOLAM. [Concomitant]
     Active Substance: ALPRAZOLAM
     Indication: PRODUCT USED FOR UNKNOWN INDICATION
  11. HYDROXYZINE [Concomitant]
     Active Substance: HYDROXYZINE HYDROCHLORIDE
     Indication: PRODUCT USED FOR UNKNOWN INDICATION
  12. BYSTOLIC [Concomitant]
     Active Substance: NEBIVOLOL HYDROCHLORIDE
     Indication: PRODUCT USED FOR UNKNOWN INDICATION
  13. BLACK COHOSH                       /01456801/ [Concomitant]
     Active Substance: BLACK COHOSH
     Indication: PRODUCT USED FOR UNKNOWN INDICATION

REACTIONS (3)
  - Muscle spasms [Unknown]
  - Dry mouth [Unknown]
  - Headache [Not Recovered/Not Resolved]
